FAERS Safety Report 8260802-0 (Version None)
Quarter: 2012Q1

REPORT INFORMATION
  Report Type: 
  Country: None (occurrence: None)
  Receive Date: 20120327
  Receipt Date: 20090327
  Transmission Date: 20120608
  Serious: Yes (Hospitalization)
  Sender: FDA-Public Use
  Company Number: PHEH2009US02814

PATIENT
  Age: 56 Year
  Sex: Female

DRUGS (5)
  1. DYAZIDE [Concomitant]
  2. GLEEVEC [Suspect]
     Indication: CHRONIC MYELOID LEUKAEMIA
     Dosage: 400 MG, QD, ORAL
     Route: 048
     Dates: start: 20090124
  3. ZANTAC [Concomitant]
  4. ADVAIR HFA [Concomitant]
  5. ALBUTEROL [Concomitant]

REACTIONS (3)
  - PNEUMONIA [None]
  - ARTHRALGIA [None]
  - JOINT SWELLING [None]
